FAERS Safety Report 21805171 (Version 1)
Quarter: 2023Q1

REPORT INFORMATION
  Report Type: Spontaneous
  Country: US (occurrence: US)
  Receive Date: 20230102
  Receipt Date: 20230102
  Transmission Date: 20230417
  Serious: Yes (Death, Other)
  Sender: FDA-Public Use
  Company Number: US-ALKEM LABORATORIES LIMITED-US-ALKEM-2022-14754

PATIENT
  Age: 63 Year
  Sex: Female

DRUGS (3)
  1. SIROLIMUS [Suspect]
     Active Substance: SIROLIMUS
     Indication: Histiocytic sarcoma
     Dosage: 2 MILLIGRAM (GOAL TROUGH OF 8-12 NG/ML)
     Route: 065
  2. PREDNISONE [Suspect]
     Active Substance: PREDNISONE
     Indication: Histiocytic sarcoma
     Dosage: 1 MILLIGRAM/KILOGRAM
     Route: 065
  3. PREDNISONE [Suspect]
     Active Substance: PREDNISONE
     Dosage: UNK TAPERING DOSE OVER 3 MONTHS)
     Route: 065

REACTIONS (3)
  - Anaemia [Fatal]
  - Septic shock [Fatal]
  - Thrombocytopenia [Fatal]
